FAERS Safety Report 4425645-4 (Version None)
Quarter: 2004Q3

REPORT INFORMATION
  Report Type: 
  Country: None (occurrence: None)
  Receive Date: 20040809
  Receipt Date: 20040727
  Transmission Date: 20050211
  Serious: Yes (Death)
  Sender: FDA-Public Use
  Company Number: S04-USA-04603-01

PATIENT
  Age: 26 Year
  Sex: Female

DRUGS (5)
  1. LEXAPRO [Suspect]
     Indication: DEPRESSION
     Dosage: 280 MG ONCE PO
     Route: 048
  2. LEXAPRO [Suspect]
     Indication: DEPRESSION
  3. LAMOTRIGINE [Concomitant]
  4. SEROQUEL [Concomitant]
  5. KLONOPIN [Concomitant]

REACTIONS (4)
  - COMA [None]
  - COMPLETED SUICIDE [None]
  - OVERDOSE [None]
  - THERAPEUTIC AGENT TOXICITY [None]
